FAERS Safety Report 16642809 (Version 6)
Quarter: 2022Q2

REPORT INFORMATION
  Report Type: Spontaneous
  Country: US (occurrence: US)
  Receive Date: 20190729
  Receipt Date: 20220419
  Transmission Date: 20220720
  Serious: No
  Sender: FDA-Public Use
  Company Number: US-PFIZER INC-2019320352

PATIENT
  Age: 82 Year
  Sex: Female

DRUGS (3)
  1. CELEBREX [Suspect]
     Active Substance: CELECOXIB
     Indication: Rheumatoid arthritis
     Dosage: 200 MG, 2X/DAY (12 YEARS AGO)
     Route: 048
     Dates: start: 2007
  2. CELEBREX [Suspect]
     Active Substance: CELECOXIB
     Indication: Tendon rupture
     Dosage: 100 MG, 1X/DAY
  3. CELEBREX [Suspect]
     Active Substance: CELECOXIB
     Indication: Back pain
     Dosage: 200 MG, 1X/DAY (TAKE IT BEFORE I GO TO BED)

REACTIONS (2)
  - Off label use [Unknown]
  - Tendon rupture [Not Recovered/Not Resolved]
